FAERS Safety Report 4841487-X (Version None)
Quarter: 2005Q4

REPORT INFORMATION
  Report Type: 
  Country: None (occurrence: None)
  Receive Date: 20051130
  Receipt Date: 20050804
  Transmission Date: 20060501
  Serious: No
  Sender: FDA-Public Use
  Company Number: US-GLAXOSMITHKLINE-A0568992A

PATIENT
  Age: 58 Year
  Sex: Female

DRUGS (2)
  1. WELLBUTRIN XL [Suspect]
     Indication: DEPRESSION
     Dosage: 150TAB PER DAY
     Route: 048
     Dates: start: 20050803
  2. NO CONCURRENT MEDICATION [Concomitant]

REACTIONS (1)
  - NAUSEA [None]
